FAERS Safety Report 15366279 (Version 1)
Quarter: 2018Q3

REPORT INFORMATION
  Report Type: Spontaneous
  Country: US (occurrence: US)
  Receive Date: 20180910
  Receipt Date: 20180910
  Transmission Date: 20181010
  Serious: No
  Sender: FDA-Public Use
  Company Number: US-SA-2018SA122132

PATIENT
  Age: 44 Year
  Sex: Male

DRUGS (6)
  1. STELARA [Concomitant]
     Active Substance: USTEKINUMAB
     Dosage: UNK UNK,UNK
     Route: 065
     Dates: start: 201507, end: 20151115
  2. LEFLUNOMIDE. [Concomitant]
     Active Substance: LEFLUNOMIDE
     Indication: ARTHRALGIA
     Dosage: UNK UNK,UNK
     Route: 065
     Dates: start: 20171101, end: 20171114
  3. ARAVA [Suspect]
     Active Substance: LEFLUNOMIDE
     Dosage: UNK UNK,UNK
     Route: 048
  4. OTEZLA [Concomitant]
     Active Substance: APREMILAST
     Dosage: UNK UNK,UNK
     Route: 065
     Dates: start: 20161206
  5. METHOTREXATE. [Concomitant]
     Active Substance: METHOTREXATE
     Indication: RASH
     Dosage: UNK UNK,UNK
     Route: 065
     Dates: start: 20170110, end: 201710
  6. HUMIRA [Concomitant]
     Active Substance: ADALIMUMAB
     Dosage: UNK UNK,UNK
     Route: 065
     Dates: start: 201505, end: 201512

REACTIONS (1)
  - Arthralgia [Unknown]
